FAERS Safety Report 6049975-8 (Version None)
Quarter: 2009Q1

REPORT INFORMATION
  Report Type: 
  Country: None (occurrence: None)
  Receive Date: 20090121
  Receipt Date: 20090115
  Transmission Date: 20090719
  Serious: Yes (Other)
  Sender: FDA-Public Use
  Company Number: SP02215

PATIENT
  Age: 66 Year
  Sex: Male

DRUGS (4)
  1. VISICOL [Suspect]
     Indication: COLONOSCOPY
     Dosage: 28 TABLETS, ORAL
     Route: 048
     Dates: start: 20050110, end: 20050110
  2. DULCOLAX [Concomitant]
  3. ACTOS [Concomitant]
  4. PRILOSEC [Concomitant]

REACTIONS (5)
  - ASTHENIA [None]
  - DEHYDRATION [None]
  - INFLUENZA [None]
  - MYALGIA [None]
  - RENAL IMPAIRMENT [None]
